FAERS Safety Report 5870157-4 (Version None)
Quarter: 2008Q3

REPORT INFORMATION
  Report Type: 
  Country: None (occurrence: None)
  Receive Date: 20080904
  Receipt Date: 20080822
  Transmission Date: 20090109
  Serious: Yes (Other)
  Sender: FDA-Public Use
  Company Number: US-PFIZER INC-2008065301

PATIENT
  Sex: Female
  Weight: 68 kg

DRUGS (9)
  1. GEODON [Suspect]
  2. CYMBALTA [Suspect]
  3. IMITREX [Suspect]
     Indication: MIGRAINE
  4. AMBIEN [Concomitant]
  5. KLONOPIN [Concomitant]
  6. PERIACTIN [Concomitant]
     Dosage: TEXT:4 MG AT BEDTIME
  7. PRAZOSIN HCL [Concomitant]
     Dosage: TEXT:2 MG AT BEDTIME
  8. SEROQUEL [Concomitant]
  9. OLANZAPINE [Concomitant]
     Dates: end: 20080730

REACTIONS (5)
  - CHEST DISCOMFORT [None]
  - DROOLING [None]
  - EXTRAPYRAMIDAL DISORDER [None]
  - RASH [None]
  - SEROTONIN SYNDROME [None]
